FAERS Safety Report 10727713 (Version 5)
Quarter: 2018Q3

REPORT INFORMATION
  Report Type: Spontaneous
  Country: US (occurrence: US)
  Receive Date: 20150121
  Receipt Date: 20180828
  Transmission Date: 20181010
  Serious: Yes (Other)
  Sender: FDA-Public Use
  Company Number: US-PFIZER INC-2015019459

PATIENT
  Age: 57 Year
  Sex: Female

DRUGS (1)
  1. CELEBREX [Suspect]
     Active Substance: CELECOXIB
     Indication: ARTHRITIS
     Dosage: 200 MG, TWICE A DAY
     Route: 048
     Dates: start: 1993

REACTIONS (2)
  - Cardiorenal syndrome [Unknown]
  - Post-traumatic neuralgia [Not Recovered/Not Resolved]

NARRATIVE: CASE EVENT DATE: 20060828
